FAERS Safety Report 25626752 (Version 1)
Quarter: 2025Q3

REPORT INFORMATION
  Report Type: Spontaneous
  Country: EU (occurrence: EU)
  Receive Date: 20250731
  Receipt Date: 20250731
  Transmission Date: 20251021
  Serious: Yes (Hospitalization)
  Sender: CHEPLAPHARM
  Company Number: EU-ROCHE-2206389

PATIENT
  Age: 43 Year
  Sex: Female
  Weight: 71 kg

DRUGS (15)
  1. CAPECITABINE [Suspect]
     Active Substance: CAPECITABINE
     Indication: Triple negative breast cancer
     Dosage: BID 1000 MG/M2 TWICE A DAY ON DAY 1 TO 14 (AS PER PROTOCOL)
     Route: 048
     Dates: start: 20181018
  2. CAPECITABINE [Suspect]
     Active Substance: CAPECITABINE
     Indication: Triple negative breast cancer
     Route: 048
     Dates: start: 20181023
  3. CAPECITABINE [Suspect]
     Active Substance: CAPECITABINE
     Indication: Triple negative breast cancer
     Route: 048
     Dates: start: 20181107
  4. PLACEBO [Suspect]
     Active Substance: PLACEBO
     Indication: Triple negative breast cancer
     Dosage: EVERY 3 WEEKS?DATE OF MOST RECENT DOSE OF BLINDED ATEZOLIZUMAB PRIOR TO ADVERSE EVENT ONSET 15/N...
     Route: 042
     Dates: start: 20181018
  5. PLACEBO [Suspect]
     Active Substance: PLACEBO
     Indication: Triple negative breast cancer
     Dosage: EVERY 3 WEEKS
     Route: 042
     Dates: start: 20181115
  6. Novalgin [Concomitant]
     Dates: start: 20181108, end: 20181115
  7. PANTOPRAZOLE [Concomitant]
     Active Substance: PANTOPRAZOLE
     Indication: Prophylaxis
     Dates: start: 20181106, end: 20181115
  8. PREGABALIN [Concomitant]
     Active Substance: PREGABALIN
     Dates: start: 20181106, end: 20181115
  9. MIRTAZAPINE [Concomitant]
     Active Substance: MIRTAZAPINE
     Dates: start: 20181106, end: 20181115
  10. CLINDAMYCIN [Concomitant]
     Active Substance: CLINDAMYCIN
     Dates: start: 20181108, end: 20181115
  11. CIPROFLOXACIN [Concomitant]
     Active Substance: CIPROFLOXACIN
     Dates: start: 20181108, end: 20181115
  12. ENOXAPARIN SODIUM [Concomitant]
     Active Substance: ENOXAPARIN SODIUM
     Indication: Prophylaxis
     Dates: start: 20181112, end: 20181115
  13. ALBUTEROL [Concomitant]
     Active Substance: ALBUTEROL
     Dates: start: 20181112, end: 20181115
  14. MORPHINE [Concomitant]
     Active Substance: MORPHINE
     Dates: start: 20181106
  15. MOVICOL [Concomitant]
     Active Substance: POLYETHYLENE GLYCOL 3350\POTASSIUM CHLORIDE\SODIUM BICARBONATE\SODIUM CHLORIDE

REACTIONS (2)
  - Pleural effusion [Not Recovered/Not Resolved]
  - Mastitis bacterial [Recovered/Resolved]

NARRATIVE: CASE EVENT DATE: 20181024
